FAERS Safety Report 6764404-4 (Version None)
Quarter: 2010Q2

REPORT INFORMATION
  Report Type: 
  Country: None (occurrence: None)
  Receive Date: 20100609
  Receipt Date: 20100330
  Transmission Date: 20101027
  Serious: No
  Sender: FDA-Public Use
  Company Number: 2010007747

PATIENT
  Age: 4 Year
  Sex: Female
  Weight: 27.6694 kg

DRUGS (1)
  1. CHILDREN'S ZYRTEC ALLERGY [Suspect]
     Indication: NASOPHARYNGITIS
     Dosage: 5 ML ONE TIME,ORAL
     Route: 048
     Dates: start: 20100329

REACTIONS (1)
  - COUGH [None]
